FAERS Safety Report 11216342 (Version 1)
Quarter: 2015Q2

REPORT INFORMATION
  Report Type: Spontaneous
  Country: CA (occurrence: CA)
  Receive Date: 20150624
  Receipt Date: 20150624
  Transmission Date: 20150821
  Serious: Yes (Other)
  Sender: FDA-Public Use
  Company Number: CA-009507513-1506CAN012167

PATIENT
  Age: 3 Year
  Sex: Male

DRUGS (1)
  1. DESLORATADINE. [Suspect]
     Active Substance: DESLORATADINE
     Indication: PRODUCT USED FOR UNKNOWN INDICATION
     Dosage: UNK UNK, QD

REACTIONS (3)
  - Tonsillar disorder [Unknown]
  - Nasal discomfort [Unknown]
  - Adenoidal disorder [Unknown]

NARRATIVE: CASE EVENT DATE: 20150602
